FAERS Safety Report 21857564 (Version 1)
Quarter: 2023Q1

REPORT INFORMATION
  Report Type: Report from Study
  Country: DE (occurrence: DE)
  Receive Date: 20230113
  Receipt Date: 20230113
  Transmission Date: 20230418
  Serious: Yes (Hospitalization, Other)
  Sender: FDA-Public Use
  Company Number: DE-CELLTRION INC.-2022DE021155

PATIENT

DRUGS (18)
  1. RITUXIMAB [Suspect]
     Active Substance: RITUXIMAB
     Indication: Diffuse large B-cell lymphoma
     Dosage: 790 MG
     Route: 042
     Dates: start: 20221013, end: 20221013
  2. RITUXIMAB [Suspect]
     Active Substance: RITUXIMAB
     Dosage: 790 MG
     Route: 042
     Dates: start: 20221109, end: 20221109
  3. RITUXIMAB [Suspect]
     Active Substance: RITUXIMAB
     Dosage: 800 MG
     Route: 042
     Dates: start: 20220916, end: 20220916
  4. ETOPOSIDE [Suspect]
     Active Substance: ETOPOSIDE
     Indication: Diffuse large B-cell lymphoma
     Dosage: 210 MG
     Route: 042
     Dates: start: 20221013, end: 20221016
  5. ETOPOSIDE [Suspect]
     Active Substance: ETOPOSIDE
     Dosage: 210 MG
     Route: 042
     Dates: start: 20221109, end: 20221112
  6. ETOPOSIDE [Suspect]
     Active Substance: ETOPOSIDE
     Dosage: 210 MG
     Route: 042
     Dates: start: 20220916, end: 20220918
  7. IFOSFAMIDE [Suspect]
     Active Substance: IFOSFAMIDE
     Indication: Diffuse large B-cell lymphoma
     Dosage: 10600 MG
     Route: 042
     Dates: start: 20221014, end: 20221015
  8. IFOSFAMIDE [Suspect]
     Active Substance: IFOSFAMIDE
     Dosage: 10600 MG
     Route: 042
     Dates: start: 20221110, end: 20221111
  9. IFOSFAMIDE [Suspect]
     Active Substance: IFOSFAMIDE
     Dosage: 10600 MG
     Route: 042
     Dates: start: 20220917, end: 20220918
  10. CARBOPLATIN [Suspect]
     Active Substance: CARBOPLATIN
     Indication: Diffuse large B-cell lymphoma
     Dosage: 650 MG
     Route: 042
     Dates: start: 20221014, end: 20221014
  11. CARBOPLATIN [Suspect]
     Active Substance: CARBOPLATIN
     Dosage: 630 MG
     Route: 042
     Dates: start: 20221110, end: 20221110
  12. CARBOPLATIN [Suspect]
     Active Substance: CARBOPLATIN
     Dosage: 510 MG
     Route: 042
     Dates: start: 20220917, end: 20220917
  13. CHOLECALCIFEROL [Concomitant]
     Active Substance: CHOLECALCIFEROL
     Indication: Osteoporosis
     Dosage: 20000 IE
     Dates: start: 20220531
  14. SPIRIVA [Concomitant]
     Active Substance: TIOTROPIUM BROMIDE MONOHYDRATE
     Indication: Chronic obstructive pulmonary disease
     Dosage: 18 UG, QD
     Dates: start: 20220916
  15. TORSEMIDE [Concomitant]
     Active Substance: TORSEMIDE
     Indication: Oedema
     Dosage: 5 MG, QD
     Dates: start: 20211001, end: 20221006
  16. POLATUZUMAB VEDOTIN [Concomitant]
     Active Substance: POLATUZUMAB VEDOTIN
     Indication: Diffuse large B-cell lymphoma
     Dosage: 164 MG, QD
     Route: 042
     Dates: start: 20221013, end: 20221013
  17. POLATUZUMAB VEDOTIN [Concomitant]
     Active Substance: POLATUZUMAB VEDOTIN
     Dosage: 162 MG, QD
     Route: 042
     Dates: start: 20221109, end: 20221109
  18. POLATUZUMAB VEDOTIN [Concomitant]
     Active Substance: POLATUZUMAB VEDOTIN
     Dosage: 166 MG, QD
     Route: 042
     Dates: start: 20220916, end: 20220916

REACTIONS (7)
  - Pneumonia [Unknown]
  - Pneumonia [Unknown]
  - Pancytopenia [Unknown]
  - Coronavirus infection [Unknown]
  - Coronavirus infection [Unknown]
  - Pyrexia [Unknown]
  - Product use issue [Unknown]

NARRATIVE: CASE EVENT DATE: 20221006
